FAERS Safety Report 17463062 (Version 1)
Quarter: 2020Q1

REPORT INFORMATION
  Report Type: Spontaneous
  Country: FR (occurrence: FR)
  Receive Date: 20200226
  Receipt Date: 20200226
  Transmission Date: 20200409
  Serious: Yes (Hospitalization)
  Sender: FDA-Public Use
  Company Number: FR-ACCORD-173717

PATIENT
  Age: 62 Year
  Sex: Male

DRUGS (10)
  1. SPASFON [Concomitant]
     Route: 048
  2. PREDNISOLONE. [Concomitant]
     Active Substance: PREDNISOLONE
     Route: 048
  3. TRIMEBUTINE [Concomitant]
     Active Substance: TRIMEBUTINE
     Dosage: UNSPECIFIED
     Route: 048
     Dates: start: 201909
  4. ERBITUX [Concomitant]
     Active Substance: CETUXIMAB
     Indication: PHARYNGEAL CANCER STAGE IV
     Dosage: UNSPECIFIED
     Route: 042
     Dates: start: 201909
  5. AUGMENTIN [Concomitant]
     Active Substance: AMOXICILLIN\CLAVULANATE POTASSIUM
     Route: 048
     Dates: start: 20191017
  6. PARACETAMOL [Concomitant]
     Active Substance: ACETAMINOPHEN
     Route: 048
  7. FLUOROURACIL. [Suspect]
     Active Substance: FLUOROURACIL
     Indication: PHARYNGEAL CANCER
     Dosage: UNSPECIFIED
     Route: 042
     Dates: start: 201909, end: 20191014
  8. KARDEGIC [Concomitant]
     Active Substance: ASPIRIN DL-LYSINE
     Dosage: 75 MG, POWDER FOR ORAL SOLUTION IN SACHET-DOSE
     Route: 048
  9. ONDANSETRON [Concomitant]
     Active Substance: ONDANSETRON
     Route: 048
  10. CISPLATIN. [Concomitant]
     Active Substance: CISPLATIN
     Indication: PHARYNGEAL CANCER STAGE IV
     Dosage: UNSPECIFIED
     Route: 042
     Dates: start: 201909

REACTIONS (1)
  - Extremity necrosis [Not Recovered/Not Resolved]

NARRATIVE: CASE EVENT DATE: 20191015
